FAERS Safety Report 17097418 (Version 2)
Quarter: 2019Q4

REPORT INFORMATION
  Report Type: Spontaneous
  Country: DE (occurrence: DE)
  Receive Date: 20191202
  Receipt Date: 20191204
  Transmission Date: 20200122
  Serious: Yes (Hospitalization)
  Sender: FDA-Public Use
  Company Number: DE-MYLANLABS-2019M1115497

PATIENT
  Age: 45 Year
  Sex: Male

DRUGS (8)
  1. VENLAFAXIN [Concomitant]
     Active Substance: VENLAFAXINE HYDROCHLORIDE
     Dosage: 75 MILLIGRAM, QD
  2. CALCIUM + D3                       /09279801/ [Concomitant]
     Dosage: QD (UNK)
  3. CITALOPRAM MYLAN [Suspect]
     Active Substance: CITALOPRAM HYDROBROMIDE
     Indication: PRODUCT USED FOR UNKNOWN INDICATION
     Dosage: 10 MILLIGRAM, QD
  4. FAMPYRA [Concomitant]
     Active Substance: DALFAMPRIDINE
     Dosage: 10 MILLIGRAM, BID
  5. VIGANTOLETTEN [Concomitant]
     Active Substance: CHOLECALCIFEROL
     Dosage: 1000 INTERNATIONAL UNIT, QD
  6. SATIVEX [Concomitant]
     Active Substance: NABIXIMOLS
     Dosage: TID (UNK)
  7. JODETTEN [Concomitant]
     Dosage: 100 MICROGRAM, QD
  8. MOVICOL [Concomitant]
     Active Substance: POLYETHYLENE GLYCOL 3350\POTASSIUM CHLORIDE\SODIUM BICARBONATE\SODIUM CHLORIDE
     Dosage: QD (UNK)

REACTIONS (5)
  - Product administration error [Unknown]
  - Serotonin syndrome [Unknown]
  - Pyrexia [Unknown]
  - Depressed level of consciousness [Unknown]
  - Hyperhidrosis [Unknown]
